FAERS Safety Report 13128264 (Version 2)
Quarter: 2017Q2

REPORT INFORMATION
  Report Type: Spontaneous
  Country: US (occurrence: US)
  Receive Date: 20170118
  Receipt Date: 20170417
  Transmission Date: 20170830
  Serious: No
  Sender: FDA-Public Use
  Company Number: US-ELI_LILLY_AND_COMPANY-US201607009139

PATIENT
  Sex: Female

DRUGS (4)
  1. CYMBALTA [Suspect]
     Active Substance: DULOXETINE HYDROCHLORIDE
     Dosage: 40 MG, QD
     Route: 048
     Dates: start: 20090930
  2. CYMBALTA [Suspect]
     Active Substance: DULOXETINE HYDROCHLORIDE
     Dosage: 20 MG, QD
     Route: 048
  3. CYMBALTA [Suspect]
     Active Substance: DULOXETINE HYDROCHLORIDE
     Dosage: 20 MG, QOD
     Route: 048
  4. CYMBALTA [Suspect]
     Active Substance: DULOXETINE HYDROCHLORIDE
     Indication: MAJOR DEPRESSION
     Dosage: 60 MG, QD
     Route: 048

REACTIONS (13)
  - Agitation [Unknown]
  - Hypokinesia [Unknown]
  - Insomnia [Unknown]
  - Feeling of despair [Unknown]
  - Lethargy [Unknown]
  - Fatigue [Unknown]
  - Confusional state [Unknown]
  - Feeling abnormal [Unknown]
  - Disturbance in attention [Unknown]
  - Dysphoria [Unknown]
  - Slow speech [Unknown]
  - Drug withdrawal syndrome [Unknown]
  - Depressed mood [Unknown]
